FAERS Safety Report 23856402 (Version 2)
Quarter: 2024Q3

REPORT INFORMATION
  Report Type: Spontaneous
  Country: HR (occurrence: HR)
  Receive Date: 20240515
  Receipt Date: 20240713
  Transmission Date: 20241016
  Serious: Yes (Other)
  Sender: CELLTRION
  Company Number: HR-PFIZER INC-202400102631

PATIENT

DRUGS (2)
  1. INFLIXIMAB [Suspect]
     Active Substance: INFLIXIMAB
     Indication: Colitis ulcerative
     Dosage: UNK
     Dates: start: 20190312
  2. INFLIXIMAB [Suspect]
     Active Substance: INFLIXIMAB
     Dosage: APPLICATION PERIOD INTENSIFIED TO 4 WEEKS
     Dates: start: 202212

REACTIONS (4)
  - Weight increased [Unknown]
  - Condition aggravated [Unknown]
  - Drug ineffective [Unknown]
  - Off label use [Unknown]

NARRATIVE: CASE EVENT DATE: 20221201
